FAERS Safety Report 23876160 (Version 2)
Quarter: 2024Q2

REPORT INFORMATION
  Report Type: Spontaneous
  Country: US (occurrence: US)
  Receive Date: 20240520
  Receipt Date: 20240611
  Transmission Date: 20240716
  Serious: No
  Sender: FDA-Public Use
  Company Number: US-INCYTE CORPORATION-2024IN005038

PATIENT

DRUGS (1)
  1. JAKAFI [Suspect]
     Active Substance: RUXOLITINIB
     Indication: Purpura
     Dosage: 15 MILLIGRAM, BID
     Route: 048
     Dates: start: 202307

REACTIONS (4)
  - Nasopharyngitis [Unknown]
  - Off label use [Unknown]
  - Middle ear effusion [Unknown]
  - Rash [Unknown]

NARRATIVE: CASE EVENT DATE: 20230701
